FAERS Safety Report 8500515-0 (Version None)
Quarter: 2012Q3

REPORT INFORMATION
  Report Type: 
  Country: None (occurrence: None)
  Receive Date: 20120710
  Receipt Date: 20120705
  Transmission Date: 20120928
  Serious: Yes (Other)
  Sender: FDA-Public Use
  Company Number: US-BAYER-2012-059985

PATIENT
  Age: 45 Year
  Sex: Female
  Weight: 61.224 kg

DRUGS (8)
  1. CELEXA [Concomitant]
     Dosage: 10 MG, UNK
  2. VICODIN ES [Concomitant]
  3. MYLANTA [ALUMINIUM HYDROXIDE,MAGNESIUM HYDROXIDE,SIMETICONE] [Concomitant]
  4. XANAX XR [Concomitant]
     Dosage: 0.5 MG, UNK
  5. STOOL SOFTENER [Concomitant]
  6. NEURONTIN [Concomitant]
     Dosage: 300 MG, UNK
  7. BACTRIM [Concomitant]
  8. BETASERON [Suspect]
     Indication: MULTIPLE SCLEROSIS
     Dosage: 0.25 MG, QOD
     Route: 058
     Dates: end: 20120607

REACTIONS (1)
  - DRUG-INDUCED LIVER INJURY [None]
